FAERS Safety Report 9179424 (Version 3)
Quarter: 2013Q2

REPORT INFORMATION
  Report Type: Spontaneous
  Country: JP (occurrence: JP)
  Receive Date: 20130321
  Receipt Date: 20130621
  Transmission Date: 20140414
  Serious: Yes (Other)
  Sender: FDA-Public Use
  Company Number: JP-ROCHE-1203176

PATIENT
  Age: 64 Year
  Sex: Male
  Weight: 61 kg

DRUGS (3)
  1. TAMIFLU [Suspect]
     Indication: INFLUENZA
     Dosage: DOSAGE IS UNCERTAIN.
     Route: 048
     Dates: start: 20130212, end: 20130216
  2. ALLELOCK [Concomitant]
     Indication: SEASONAL ALLERGY
     Route: 048
     Dates: start: 20130212
  3. CRESTOR [Concomitant]
     Indication: LIPID METABOLISM DISORDER
     Route: 048
     Dates: start: 20060216

REACTIONS (1)
  - Irritability [Recovered/Resolved]
